FAERS Safety Report 5687105-2 (Version None)
Quarter: 2008Q1

REPORT INFORMATION
  Report Type: 
  Country: None (occurrence: None)
  Receive Date: 20080328
  Receipt Date: 20070319
  Transmission Date: 20080703
  Serious: No
  Sender: FDA-Public Use
  Company Number: US-BAYER-US-2007-009782

PATIENT
  Age: 78 Year
  Sex: Female

DRUGS (4)
  1. BETAPACE AF [Suspect]
     Indication: ATRIAL FLUTTER
     Dosage: UNIT DOSE: 80 MG
     Route: 048
     Dates: start: 20040101
  2. LIPITOR [Concomitant]
  3. SYNTHROID [Concomitant]
     Dosage: UNIT DOSE: 0.75 MG
  4. CAFFEINE CITRATE [Concomitant]

REACTIONS (1)
  - PALPITATIONS [None]
